FAERS Safety Report 5799044-7 (Version None)
Quarter: 2008Q3

REPORT INFORMATION
  Report Type: 
  Country: None (occurrence: None)
  Receive Date: 20080701
  Receipt Date: 20080624
  Transmission Date: 20090109
  Serious: Yes (Hospitalization, Other)
  Sender: FDA-Public Use
  Company Number: TPA2008A00398

PATIENT
  Sex: Female

DRUGS (3)
  1. ACTOS [Suspect]
     Indication: DRUG USE FOR UNKNOWN INDICATION
     Dosage: PER ORAL
     Route: 048
  2. INSULIN  (INSULIN) [Concomitant]
  3. MULTIPLE UNKNOWN MEDICATIONS [Concomitant]

REACTIONS (3)
  - ACUTE PULMONARY OEDEMA [None]
  - HYPOXIA [None]
  - SKIN ULCER [None]
